FAERS Safety Report 6558607-1 (Version None)
Quarter: 2010Q1

REPORT INFORMATION
  Report Type: 
  Country: None (occurrence: None)
  Receive Date: 20100128
  Receipt Date: 20100128
  Transmission Date: 20100710
  Serious: No
  Sender: FDA-Public Use
  Company Number: None

PATIENT
  Age: 49 Year
  Sex: Female
  Weight: 72.5755 kg

DRUGS (3)
  1. IXABEPELONE 40 MG/M2 BRISTO-MYERS-SQUIB [Suspect]
     Indication: BREAST CANCER METASTATIC
     Dosage: 72 MG Q 21 DAYS IV
     Route: 042
     Dates: start: 20090217, end: 20090609
  2. CAPECITABINE [Suspect]
     Indication: BREAST CANCER METASTATIC
     Dosage: 1500 MG BID FOR 14 DAYS PO
     Route: 048
     Dates: start: 20090217, end: 20090623
  3. SYNTHROID [Concomitant]

REACTIONS (3)
  - NEUROPATHY PERIPHERAL [None]
  - SPINAL CORD COMPRESSION [None]
  - SUPRAVENTRICULAR TACHYCARDIA [None]
